FAERS Safety Report 9222693 (Version 2)
Quarter: 2013Q2

REPORT INFORMATION
  Report Type: Report from Study
  Country: JP (occurrence: JP)
  Receive Date: 20130410
  Receipt Date: 20130601
  Transmission Date: 20140414
  Serious: Yes (Death, Life-Threatening)
  Sender: FDA-Public Use
  Company Number: JP-ROCHE-1064164

PATIENT
  Age: 72 Year
  Sex: Male

DRUGS (10)
  1. RITUXIMAB [Suspect]
     Indication: B-CELL LYMPHOMA
     Route: 042
     Dates: start: 20090120, end: 20090127
  2. IBRITUMOMAB TIUXETAN [Suspect]
     Indication: B-CELL LYMPHOMA
     Dosage: 14.8 MBQ/KG
     Route: 042
     Dates: start: 20090127
  3. IBRITUMOMAB TIUXETAN [Suspect]
     Route: 042
     Dates: start: 20090120
  4. CYCLOPHOSPHAMIDE [Suspect]
     Indication: PRODUCT USED FOR UNKNOWN INDICATION
     Route: 065
  5. DOXORUBICIN HYDROCHLORIDE [Suspect]
     Indication: PRODUCT USED FOR UNKNOWN INDICATION
     Route: 065
  6. VINCRISTINE SULFATE [Suspect]
     Indication: PRODUCT USED FOR UNKNOWN INDICATION
     Route: 065
  7. CONIEL [Concomitant]
     Indication: HYPERTENSION
     Route: 048
  8. BAKTAR [Concomitant]
     Indication: PROPHYLAXIS
     Route: 048
     Dates: start: 20070828
  9. DIFLUCAN [Concomitant]
     Indication: PROPHYLAXIS
     Route: 048
     Dates: start: 20080722
  10. MAGNESIUM OXIDE [Concomitant]
     Indication: CONSTIPATION
     Route: 048
     Dates: start: 20080916

REACTIONS (3)
  - Myelodysplastic syndrome [Fatal]
  - Neutrophil count decreased [Not Recovered/Not Resolved]
  - Platelet count decreased [Not Recovered/Not Resolved]
